FAERS Safety Report 9537726 (Version 2)
Quarter: 2013Q3

REPORT INFORMATION
  Report Type: Spontaneous
  Country: US (occurrence: US)
  Receive Date: 20130919
  Receipt Date: 20130929
  Transmission Date: 20140515
  Serious: No
  Sender: FDA-Public Use
  Company Number: US-009507513-1309USA008808

PATIENT
  Sex: Male

DRUGS (2)
  1. LOTRIMIN AF LIQUID SPRAY [Suspect]
     Indication: TINEA INFECTION
     Dosage: UNK UNK, QD
     Route: 048
     Dates: start: 201307
  2. LOTRIMIN AF SPRAY POWDER [Suspect]
     Indication: TINEA INFECTION
     Dosage: UNK, QD
     Dates: start: 201307

REACTIONS (2)
  - Application site discolouration [Not Recovered/Not Resolved]
  - Incorrect drug administration duration [Unknown]
